FAERS Safety Report 8047719-1 (Version None)
Quarter: 2012Q1

REPORT INFORMATION
  Report Type: 
  Country: None (occurrence: None)
  Receive Date: 20120116
  Receipt Date: 20120109
  Transmission Date: 20120608
  Serious: Yes (Other)
  Sender: FDA-Public Use
  Company Number: CHPA2012US000748

PATIENT
  Age: 53 Year
  Sex: Female

DRUGS (2)
  1. COUMADIN [Concomitant]
     Dosage: UNK DF, UNK
  2. GAS-X EXTRA STRENGTH SOFTGELS [Suspect]
     Indication: FLATULENCE
     Dosage: 1-2 DF, PRN
     Route: 048
     Dates: start: 20111201, end: 20120101

REACTIONS (3)
  - ABDOMINAL DISCOMFORT [None]
  - VOMITING [None]
  - CYSTITIS [None]
